FAERS Safety Report 5021234-1 (Version None)
Quarter: 2006Q2

REPORT INFORMATION
  Report Type: 
  Country: None (occurrence: None)
  Receive Date: 20060608
  Receipt Date: 20060519
  Transmission Date: 20061013
  Serious: Yes (Other)
  Sender: FDA-Public Use
  Company Number: US-ROCHE-448953

PATIENT
  Age: 70 Year
  Sex: Female
  Weight: 41.7 kg

DRUGS (15)
  1. BONIVA [Suspect]
     Indication: OSTEOPOROSIS
     Route: 048
     Dates: start: 20060503
  2. TAMOXIFEN [Concomitant]
     Indication: BREAST CANCER
     Route: 048
  3. PAXIL CR [Concomitant]
     Indication: DEPRESSION
     Dosage: AT NIGHT
     Route: 048
  4. ULTRAM [Concomitant]
     Indication: PAIN
     Dosage: DOSAGE REGIMEN: 100 MG PRN
     Route: 048
  5. GLUCOSAMINE [Concomitant]
     Indication: FIBROMYALGIA
     Route: 048
  6. MAGNESIUM [Concomitant]
     Route: 048
  7. PROSOM [Concomitant]
     Indication: SOMNOLENCE
     Route: 048
  8. SURFAK [Concomitant]
     Indication: CONSTIPATION
     Route: 048
  9. COENZYME Q10 [Concomitant]
     Indication: FIBROMYALGIA
     Route: 048
  10. VITAMIN B12 INJECTION [Concomitant]
     Indication: VITAMIN SUPPLEMENTATION
     Dosage: DOSAGE REGIMEN REPORTED AS ONE INJECTION/MONTH
     Route: 030
  11. VITAMIN B COMPLEX CAP [Concomitant]
     Route: 048
  12. FOLIC ACID [Concomitant]
     Route: 048
  13. ASCORBIC ACID [Concomitant]
     Route: 048
  14. MULTI-VITAMIN [Concomitant]
     Route: 048
  15. CALCIUM GLUCONATE [Concomitant]
     Route: 048

REACTIONS (2)
  - DIZZINESS [None]
  - MELAENA [None]
